FAERS Safety Report 20147807 (Version 4)
Quarter: 2022Q3

REPORT INFORMATION
  Report Type: Report from Study
  Country: IN (occurrence: IN)
  Receive Date: 20211203
  Receipt Date: 20220729
  Transmission Date: 20221027
  Serious: Yes (Other)
  Sender: FDA-Public Use
  Company Number: IN-NOVARTISPH-NVSC2021IN275721

PATIENT
  Age: 39 Year
  Sex: Male

DRUGS (4)
  1. CERITINIB [Suspect]
     Active Substance: CERITINIB
     Indication: Non-small cell lung cancer
     Dosage: 450 MG, QD
     Route: 065
     Dates: start: 20211019
  2. CERITINIB [Suspect]
     Active Substance: CERITINIB
     Dosage: 450 MG, QD
     Route: 065
     Dates: start: 20211019, end: 202205
  3. CERITINIB [Suspect]
     Active Substance: CERITINIB
     Dosage: 450 MG, QD
     Route: 065
     Dates: start: 202206, end: 20220704
  4. CERITINIB [Suspect]
     Active Substance: CERITINIB
     Dosage: 600 MG, QD
     Route: 065
     Dates: start: 20220705

REACTIONS (8)
  - Pneumonitis [Unknown]
  - Pyrexia [Recovering/Resolving]
  - Cough [Not Recovered/Not Resolved]
  - Pulmonary tuberculosis [Not Recovered/Not Resolved]
  - Chest pain [Not Recovered/Not Resolved]
  - Pain in extremity [Not Recovered/Not Resolved]
  - Weight decreased [Unknown]
  - Product use issue [Unknown]

NARRATIVE: CASE EVENT DATE: 20211101
